FAERS Safety Report 5506000-2 (Version None)
Quarter: 2007Q4

REPORT INFORMATION
  Report Type: 
  Country: None (occurrence: None)
  Receive Date: 20071102
  Receipt Date: 20071102
  Transmission Date: 20080405
  Serious: Yes (Hospitalization)
  Sender: FDA-Public Use
  Company Number: None

PATIENT
  Sex: Female
  Weight: 81.6475 kg

DRUGS (1)
  1. BEVACIZUMAB,25MG/ML,GENETECH [Suspect]
     Indication: BREAST CANCER
     Dosage: 816 MG Q 2WKS IV
     Route: 042
     Dates: start: 20071001

REACTIONS (2)
  - CATHETER SITE INFECTION [None]
  - CELLULITIS [None]
